FAERS Safety Report 5722118-3 (Version None)
Quarter: 2008Q2

REPORT INFORMATION
  Report Type: 
  Country: None (occurrence: None)
  Receive Date: 20080429
  Receipt Date: 20080421
  Transmission Date: 20081010
  Serious: Yes (Hospitalization, Other)
  Sender: FDA-Public Use
  Company Number: US-ELI_LILLY_AND_COMPANY-US200804005536

PATIENT
  Sex: Female
  Weight: 108.39 kg

DRUGS (19)
  1. BYETTA [Suspect]
     Indication: TYPE 2 DIABETES MELLITUS
     Dosage: 5 UG, 2/D
     Route: 058
     Dates: start: 20050101, end: 20060101
  2. BYETTA [Suspect]
     Dosage: 10 UG, 2/D
     Route: 058
     Dates: start: 20060101, end: 20080318
  3. BYETTA [Suspect]
     Dosage: 10 UG, 2/D
     Route: 058
     Dates: start: 20080301, end: 20080401
  4. CLONIDINE HCL [Concomitant]
     Indication: HEART RATE
     Dosage: 0.3 MG, 2/D
  5. GLUCOVANCE [Concomitant]
     Indication: TYPE 2 DIABETES MELLITUS
     Dosage: UNK, 2/D
     Route: 048
  6. METOPROLOL TARTRATE [Concomitant]
     Indication: HEART RATE
     Dosage: 25 MG, DAILY (1/D)
  7. ACTOS [Concomitant]
     Indication: TYPE 2 DIABETES MELLITUS
     Dosage: 15 MG, DAILY (1/D)
  8. LISINOPRIL [Concomitant]
     Indication: BLOOD PRESSURE
     Dosage: 40 MG, DAILY (1/D)
  9. DILTIAZEM [Concomitant]
     Indication: BLOOD PRESSURE
     Dosage: 240 MG, DAILY (1/D)
  10. PLAVIX [Concomitant]
     Indication: CARDIAC DISORDER
     Dosage: 75 MG, DAILY (1/D)
  11. FOSAMAX [Concomitant]
     Indication: BONE DENSITY DECREASED
     Dosage: 70 MG, WEEKLY (1/W)
  12. VYTORIN [Concomitant]
     Indication: BLOOD PRESSURE
     Dosage: 40 MG, DAILY (1/D)
  13. ASPIRIN [Concomitant]
     Indication: CARDIAC DISORDER
     Dosage: 81 MG, DAILY (1/D)
  14. CALCIUM [Concomitant]
     Dosage: UNK, DAILY (1/D)
  15. SELENIUM [Concomitant]
     Dosage: UNK, DAILY (1/D)
  16. MAGNESIUM [Concomitant]
     Dosage: UNK, DAILY (1/D)
  17. VITAMIN B-12 [Concomitant]
     Dosage: UNK, DAILY (1/D)
  18. FLAXSEED OIL [Concomitant]
     Dosage: UNK, DAILY (1/D)
  19. LASIX [Concomitant]
     Indication: FLUID RETENTION
     Dosage: 20 MG, AS NEEDED

REACTIONS (11)
  - ABDOMINAL PAIN UPPER [None]
  - BLOOD GLUCOSE DECREASED [None]
  - BLOOD GLUCOSE FLUCTUATION [None]
  - BLOOD GLUCOSE INCREASED [None]
  - DECREASED APPETITE [None]
  - DIARRHOEA [None]
  - FEELING HOT [None]
  - NERVOUSNESS [None]
  - OEDEMA PERIPHERAL [None]
  - PANCREATITIS [None]
  - WEIGHT DECREASED [None]
